FAERS Safety Report 7978506-8 (Version None)
Quarter: 2011Q4

REPORT INFORMATION
  Report Type: 
  Country: None (occurrence: None)
  Receive Date: 20111214
  Receipt Date: 20111206
  Transmission Date: 20120403
  Serious: Yes (Other)
  Sender: FDA-Public Use
  Company Number: CA-JNJFOC-20111205920

PATIENT

DRUGS (2)
  1. RITONAVIR [Suspect]
     Indication: HIV INFECTION
     Route: 065
  2. PREZISTA [Suspect]
     Indication: HIV INFECTION
     Route: 065

REACTIONS (2)
  - PROTHROMBIN TIME PROLONGED [None]
  - INTERNATIONAL NORMALISED RATIO [None]
